FAERS Safety Report 6636559-3 (Version None)
Quarter: 2010Q1

REPORT INFORMATION
  Report Type: 
  Country: None (occurrence: None)
  Receive Date: 20100310
  Receipt Date: 20100303
  Transmission Date: 20100710
  Serious: Yes (Hospitalization)
  Sender: FDA-Public Use
  Company Number: SPV1-2010-00405

PATIENT
  Age: 41 Year
  Sex: Male

DRUGS (12)
  1. FOSRENOL [Suspect]
     Indication: HYPERPHOSPHATAEMIA
     Dosage: ORAL
     Route: 048
     Dates: start: 20090710, end: 20090925
  2. FOSRENOL [Suspect]
     Indication: HYPERPHOSPHATAEMIA
     Dosage: ORAL
     Route: 048
     Dates: start: 20090925
  3. CELECOXIB [Suspect]
     Dosage: ORAL
     Route: 048
  4. CALTAN (CALCIUM CARBONATE) [Concomitant]
  5. OXAROL (MAXACALCITOL) [Concomitant]
  6. CINACALCET HYDROCHLORIDE (CINACALCET HYDROCHLORIDE) [Concomitant]
  7. ALLOPURINOL [Concomitant]
  8. PLETALL (CILOSTAZOL) [Concomitant]
  9. NEOMALLERMIN TR (CHLORPHENAMINE MALEATE) [Concomitant]
  10. NORVASC [Concomitant]
  11. EPOGEN [Concomitant]
  12. RENAGEL [Concomitant]

REACTIONS (2)
  - ULCER HAEMORRHAGE [None]
  - UPPER RESPIRATORY TRACT INFLAMMATION [None]
